FAERS Safety Report 6992299-2 (Version None)
Quarter: 2010Q3

REPORT INFORMATION
  Report Type: 
  Country: None (occurrence: None)
  Receive Date: 20100917
  Receipt Date: 20100908
  Transmission Date: 20110219
  Serious: Yes (Other)
  Sender: FDA-Public Use
  Company Number: GB-ASTRAZENECA-2010SE40176

PATIENT
  Age: 38 Year
  Sex: Female
  Weight: 51 kg

DRUGS (6)
  1. OMEPRAZOLE [Suspect]
     Route: 048
     Dates: start: 20090404, end: 20090827
  2. LANSOPRAZOLE [Suspect]
     Indication: DYSPEPSIA
     Route: 048
     Dates: start: 20030617
  3. LANSOPRAZOLE [Suspect]
     Route: 048
     Dates: start: 20050201, end: 20090404
  4. CYCLIZINE [Concomitant]
  5. GABAPENTIN [Concomitant]
  6. MS CONTIN [Concomitant]

REACTIONS (1)
  - HYPOMAGNESAEMIA [None]
